FAERS Safety Report 14543544 (Version 1)
Quarter: 2018Q1

REPORT INFORMATION
  Report Type: Spontaneous
  Country: FI (occurrence: FI)
  Receive Date: 20180216
  Receipt Date: 20180216
  Transmission Date: 20180509
  Serious: Yes (Hospitalization)
  Sender: FDA-Public Use
  Company Number: FI-PFIZER INC-2018066080

PATIENT
  Age: 79 Year
  Sex: Male

DRUGS (13)
  1. ORMOX [Concomitant]
     Dosage: 20 MG, DAILY
     Route: 048
     Dates: start: 20130531
  2. COLECALCIFEROL [Concomitant]
     Active Substance: CHOLECALCIFEROL
     Dosage: 20 UG, DAILY
     Route: 048
     Dates: start: 20170517
  3. PANADOL FORTE /00020001/ [Concomitant]
     Indication: PAIN
     Dosage: 3 G, DAILY
     Route: 048
     Dates: start: 20170516
  4. FINASTERID ORION [Concomitant]
     Dosage: 5 MG, DAILY
     Route: 048
     Dates: start: 20140919
  5. VERPAMIL [Concomitant]
     Active Substance: VERAPAMIL HYDROCHLORIDE
     Dosage: 160 MG, DAILY
     Route: 048
     Dates: start: 20150211
  6. FLUVASTATIN MYLAN [Concomitant]
     Active Substance: FLUVASTATIN SODIUM
     Dosage: 40 MG, DAILY
     Route: 048
     Dates: start: 20130531
  7. CLOPIDOGREL [Concomitant]
     Active Substance: CLOPIDOGREL BISULFATE
     Dosage: 75 MG, DAILY
     Route: 048
     Dates: start: 20170317
  8. ALLONOL [Concomitant]
     Active Substance: ALLOPURINOL
     Indication: GOUT
     Dosage: 50 MG, DAILY
     Route: 048
     Dates: start: 20130531
  9. NEURONTIN [Concomitant]
     Active Substance: GABAPENTIN
     Indication: PAIN
     Dosage: 900 MG, DAILY
     Route: 048
     Dates: start: 20171122
  10. ZYVOXID [Suspect]
     Active Substance: LINEZOLID
     Indication: INFECTION
     Dosage: 1200 MG, DAILY
     Route: 048
     Dates: start: 20171219, end: 20171227
  11. OMEPRAZOL RATIOPHARM [Concomitant]
     Active Substance: OMEPRAZOLE
     Indication: PROPHYLAXIS AGAINST GASTROINTESTINAL ULCER
     Dosage: 20 MG, DAILY
     Route: 048
     Dates: start: 20171122
  12. TARGINIQ ER [Concomitant]
     Active Substance: NALOXONE HYDROCHLORIDE\OXYCODONE HYDROCHLORIDE
     Indication: PAIN
     Dosage: 2 DF, DAILY
     Route: 048
     Dates: start: 20171124
  13. LEVOLAC [Concomitant]
     Active Substance: LACTULOSE
     Indication: CONSTIPATION
     Dosage: 20 ML, DAILY
     Route: 048
     Dates: start: 20171120

REACTIONS (4)
  - Neuropathy peripheral [Not Recovered/Not Resolved]
  - Back pain [Not Recovered/Not Resolved]
  - Fall [Not Recovered/Not Resolved]
  - Ligament sprain [Not Recovered/Not Resolved]

NARRATIVE: CASE EVENT DATE: 20171220
